FAERS Safety Report 4768181-8 (Version None)
Quarter: 2005Q3

REPORT INFORMATION
  Report Type: 
  Country: None (occurrence: None)
  Receive Date: 20050912
  Receipt Date: 20050912
  Transmission Date: 20060218
  Serious: No
  Sender: FDA-Public Use
  Company Number: None

PATIENT
  Age: 85 Year
  Sex: Female
  Weight: 64 kg

DRUGS (1)
  1. CIPRO IV [Suspect]
     Indication: URINARY TRACT INFECTION
     Dosage: IV Q 12H
     Route: 042
     Dates: start: 20050828, end: 20050905

REACTIONS (2)
  - HEPATIC ENZYME INCREASED [None]
  - HEPATOMEGALY [None]
